FAERS Safety Report 7075021-3 (Version None)
Quarter: 2010Q4

REPORT INFORMATION
  Report Type: 
  Country: None (occurrence: None)
  Receive Date: 20101029
  Receipt Date: 20100121
  Transmission Date: 20110411
  Serious: No
  Sender: FDA-Public Use
  Company Number: US-WYE-H12767009

PATIENT
  Age: 89 Year
  Sex: Female
  Weight: 52.21 kg

DRUGS (2)
  1. ALAVERT [Suspect]
     Indication: RHINORRHOEA
     Route: 048
     Dates: start: 20091221, end: 20091221
  2. LEVOTHROID [Concomitant]

REACTIONS (1)
  - DRUG INEFFECTIVE [None]
